FAERS Safety Report 26019682 (Version 1)
Quarter: 2025Q4

REPORT INFORMATION
  Report Type: Spontaneous
  Country: CN (occurrence: CN)
  Receive Date: 20251110
  Receipt Date: 20251110
  Transmission Date: 20260119
  Serious: Yes (Hospitalization)
  Sender: PFIZER
  Company Number: CN-PFIZER INC-PV202500130653

PATIENT
  Age: 59 Year
  Sex: Male

DRUGS (3)
  1. MEROPENEM [Suspect]
     Active Substance: MEROPENEM
     Indication: Soft tissue infection
     Dosage: 0.5 G, 2X/DAY
     Route: 041
     Dates: start: 20251020, end: 20251021
  2. RANITIDINE [Concomitant]
     Active Substance: RANITIDINE
     Indication: Gastrooesophageal reflux disease
     Dosage: 100 MG, 2X/DAY
     Dates: start: 20251020
  3. RANITIDINE [Concomitant]
     Active Substance: RANITIDINE
     Indication: Dyspepsia

REACTIONS (1)
  - Epilepsy [Recovering/Resolving]

NARRATIVE: CASE EVENT DATE: 20251021
